FAERS Safety Report 6469861-9 (Version None)
Quarter: 2009Q4

REPORT INFORMATION
  Report Type: 
  Country: None (occurrence: None)
  Receive Date: 20091203
  Receipt Date: 20080116
  Transmission Date: 20100525
  Serious: Yes (Hospitalization)
  Sender: FDA-Public Use
  Company Number: US-ELI_LILLY_AND_COMPANY-US200711004165

PATIENT
  Sex: Male

DRUGS (9)
  1. CYMBALTA [Suspect]
     Indication: PAIN IN EXTREMITY
     Dosage: 30 MG, DAILY (1/D)
     Route: 048
     Dates: start: 20070701
  2. CYMBALTA [Suspect]
     Dosage: 90 MG, DAILY (1/D)
     Route: 048
     Dates: start: 20071116
  3. REMERON [Concomitant]
     Indication: DEPRESSION
  4. SEROQUEL [Concomitant]
     Indication: SLEEP DISORDER
  5. GABAPENTIN [Concomitant]
     Indication: PAIN IN EXTREMITY
  6. COUMADIN [Concomitant]
     Indication: THROMBOSIS
  7. PRILOSEC [Concomitant]
  8. XANAX [Concomitant]
     Indication: ANXIETY
  9. FLEXERIL [Concomitant]
     Indication: BACK PAIN

REACTIONS (8)
  - ANXIETY [None]
  - DEPRESSION [None]
  - DRUG INEFFECTIVE [None]
  - INTESTINAL OBSTRUCTION [None]
  - MALAISE [None]
  - PAIN IN EXTREMITY [None]
  - SELF ESTEEM DECREASED [None]
  - SUICIDAL IDEATION [None]
